FAERS Safety Report 11276874 (Version 2)
Quarter: 2015Q3

REPORT INFORMATION
  Report Type: Spontaneous
  Country: US (occurrence: US)
  Receive Date: 20150716
  Receipt Date: 20150810
  Transmission Date: 20151125
  Serious: Yes (Other)
  Sender: FDA-Public Use
  Company Number: US-RECKITT BENCKISER PHARMACEUTICAL, INC-RB-081119-2015

PATIENT
  Age: 31 Year
  Sex: Male

DRUGS (1)
  1. SUBOXONE [Suspect]
     Active Substance: BUPRENORPHINE HYDROCHLORIDE\NALOXONE HYDROCHLORIDE
     Indication: PRODUCT USED FOR UNKNOWN INDICATION
     Dosage: TWO AND HALF FILM, QD
     Route: 065
     Dates: start: 20150427

REACTIONS (4)
  - Product preparation error [Unknown]
  - Fall [Recovered/Resolved]
  - Headache [Unknown]
  - Foot fracture [Unknown]

NARRATIVE: CASE EVENT DATE: 20150622
